FAERS Safety Report 6286494-8 (Version None)
Quarter: 2009Q3

REPORT INFORMATION
  Report Type: 
  Country: None (occurrence: None)
  Receive Date: 20090716
  Receipt Date: 20080603
  Transmission Date: 20100115
  Serious: Yes (Hospitalization)
  Sender: FDA-Public Use
  Company Number: 2008BI014334

PATIENT
  Age: 36 Year
  Sex: Female
  Weight: 97.5234 kg

DRUGS (3)
  1. AVONEX [Suspect]
     Indication: MULTIPLE SCLEROSIS
     Dosage: 30 UG;QW;IM
     Route: 030
     Dates: start: 20070101
  2. NEURONTIN [Concomitant]
  3. PREV MEDS [Concomitant]

REACTIONS (2)
  - MULTIPLE SCLEROSIS RELAPSE [None]
  - NAUSEA [None]
